FAERS Safety Report 5956211-7 (Version None)
Quarter: 2008Q4

REPORT INFORMATION
  Report Type: 
  Country: None (occurrence: None)
  Receive Date: 20081118
  Receipt Date: 20081110
  Transmission Date: 20090506
  Serious: Yes (Other)
  Sender: FDA-Public Use
  Company Number: DE-JNJFOC-20081102163

PATIENT
  Age: 53 Year
  Sex: Female

DRUGS (14)
  1. HALDOL [Suspect]
     Dosage: 10-0 MG
     Route: 048
  2. HALDOL [Suspect]
     Route: 048
  3. HALDOL [Suspect]
     Indication: DRUG USE FOR UNKNOWN INDICATION
     Route: 048
  4. RISPERDAL [Suspect]
     Route: 048
  5. RISPERDAL [Suspect]
     Route: 048
  6. RISPERDAL [Suspect]
     Route: 048
  7. RISPERDAL [Suspect]
     Indication: DRUG USE FOR UNKNOWN INDICATION
     Route: 048
  8. VALPROATE SODIUM [Suspect]
     Route: 048
  9. VALPROATE SODIUM [Suspect]
     Route: 048
  10. VALPROATE SODIUM [Suspect]
     Route: 048
  11. VALPROATE SODIUM [Suspect]
     Route: 048
  12. VALPROATE SODIUM [Suspect]
     Indication: DRUG USE FOR UNKNOWN INDICATION
     Route: 048
  13. DIAZEPAM [Concomitant]
     Route: 048
  14. ZOPICLON [Concomitant]
     Route: 048

REACTIONS (3)
  - BACK PAIN [None]
  - EXTRAPYRAMIDAL DISORDER [None]
  - PLEUROTHOTONUS [None]
